FAERS Safety Report 9912664 (Version 1)
Quarter: 2014Q1

REPORT INFORMATION
  Report Type: Spontaneous
  Country: US (occurrence: None)
  Receive Date: 20140212
  Receipt Date: 20140212
  Transmission Date: 20141002
  Serious: Yes (Other)
  Sender: FDA-Public Use
  Company Number: 2014-US-000636

PATIENT
  Age: 29 Year
  Sex: Female
  Weight: 51.2 kg

DRUGS (4)
  1. XYREM [Suspect]
     Indication: NARCOLEPSY
     Route: 048
     Dates: start: 201207, end: 2012
  2. XYREM [Suspect]
     Indication: CATAPLEXY
     Route: 048
     Dates: start: 201207, end: 2012
  3. MULTIVITAMIN  (VITAMINS NOS) [Concomitant]
  4. PRENATAL VITAMINS (ASCORBIC ACID, CALCIUM PANTOTHENATE, CYANOCOBALAMIN, ERGOCALCIFEROL, NICOTINAMIDE, PYRIDOXINE HYDROCHLORIDE, RETINOL PALMITATE, RIBOFLAVIN, THIAMINE MONONITRATE) [Concomitant]

REACTIONS (2)
  - Abortion spontaneous [None]
  - Maternal exposure before pregnancy [None]
